FAERS Safety Report 7363061-6 (Version None)
Quarter: 2011Q1

REPORT INFORMATION
  Report Type: 
  Country: None (occurrence: None)
  Receive Date: 20110321
  Receipt Date: 20110311
  Transmission Date: 20110831
  Serious: Yes (Hospitalization, Other)
  Sender: FDA-Public Use
  Company Number: US-PFIZER INC-2008152159

PATIENT
  Sex: Female

DRUGS (3)
  1. GABAPENTIN [Suspect]
     Indication: PAIN
     Dosage: 800MG 12 TIMES A DAY
     Route: 048
     Dates: start: 20041227
  2. NEURONTIN [Suspect]
     Indication: PAIN
     Dosage: 600 MG, 3X/DAY
     Route: 048
     Dates: start: 20040914
  3. NEURONTIN [Suspect]
     Dosage: 800MG 12 TIMES A DAY
     Dates: start: 20041015

REACTIONS (2)
  - SUICIDE ATTEMPT [None]
  - DRUG INEFFECTIVE FOR UNAPPROVED INDICATION [None]
